FAERS Safety Report 14341789 (Version 1)
Quarter: 2018Q1

REPORT INFORMATION
  Report Type: Report from Study
  Country: None (occurrence: US)
  Receive Date: 20180102
  Receipt Date: 20180102
  Transmission Date: 20180509
  Serious: Yes (Hospitalization)
  Sender: FDA-Public Use
  Company Number: US-ABBVIE-17K-163-2195035-00

PATIENT
  Age: 43 Year
  Sex: Male
  Weight: 81.27 kg

DRUGS (1)
  1. HUMIRA [Suspect]
     Active Substance: ADALIMUMAB
     Indication: CROHN^S DISEASE
     Route: 058
     Dates: start: 201708, end: 201711

REACTIONS (13)
  - Pneumonia legionella [Recovering/Resolving]
  - Pulmonary thrombosis [Recovering/Resolving]
  - Pallor [Recovering/Resolving]
  - Incoherent [Recovered/Resolved]
  - Dyskinesia [Recovered/Resolved]
  - Apnoea [Recovered/Resolved]
  - Lethargy [Recovering/Resolving]
  - Gait disturbance [Recovering/Resolving]
  - Eye movement disorder [Recovered/Resolved]
  - Oropharyngeal pain [Recovered/Resolved]
  - Pulmonary oedema [Recovering/Resolving]
  - Asthenia [Recovering/Resolving]
  - Weight decreased [Recovering/Resolving]

NARRATIVE: CASE EVENT DATE: 201711
